FAERS Safety Report 10421673 (Version 1)
Quarter: 2014Q3

REPORT INFORMATION
  Report Type: Spontaneous
  Country: US (occurrence: US)
  Receive Date: 20140901
  Receipt Date: 20140901
  Transmission Date: 20150326
  Serious: No
  Sender: FDA-Public Use
  Company Number: US-BIOGENIDEC-2014BI085987

PATIENT
  Sex: Female

DRUGS (1)
  1. TECFIDERA [Suspect]
     Active Substance: DIMETHYL FUMARATE
     Indication: PRODUCT USED FOR UNKNOWN INDICATION
     Route: 048

REACTIONS (8)
  - Suicidal ideation [Unknown]
  - Vomiting [Unknown]
  - Asthenia [Unknown]
  - Flushing [Unknown]
  - Depression [Unknown]
  - Palpitations [Unknown]
  - Nausea [Unknown]
  - Diarrhoea [Unknown]
